FAERS Safety Report 25890713 (Version 1)
Quarter: 2025Q4

REPORT INFORMATION
  Report Type: Report from Study
  Country: US (occurrence: US)
  Receive Date: 20251007
  Receipt Date: 20251007
  Transmission Date: 20260117
  Serious: Yes (Hospitalization)
  Sender: MALLINCKRODT
  Company Number: US-MALLINCKRODT-MNK202506062

PATIENT
  Sex: Male

DRUGS (2)
  1. CORTICOTROPIN [Suspect]
     Active Substance: CORTICOTROPIN
     Indication: Nephritic syndrome
     Dosage: UNKNOWN
  2. BUMEX [Concomitant]
     Active Substance: BUMETANIDE
     Dosage: UNKNOWN

REACTIONS (3)
  - Nephritic syndrome [Unknown]
  - Condition aggravated [Unknown]
  - Weight increased [Unknown]
